FAERS Safety Report 7094050-7 (Version None)
Quarter: 2010Q4

REPORT INFORMATION
  Report Type: 
  Country: None (occurrence: None)
  Receive Date: 20101110
  Receipt Date: 20101028
  Transmission Date: 20110411
  Serious: No
  Sender: FDA-Public Use
  Company Number: US-ELI_LILLY_AND_COMPANY-US201011000551

PATIENT
  Sex: Male

DRUGS (1)
  1. ZYPREXA [Suspect]
     Dosage: UNK, UNKNOWN

REACTIONS (5)
  - DIABETES MELLITUS [None]
  - LIVER FUNCTION TEST ABNORMAL [None]
  - MOOD ALTERED [None]
  - PLATELET COUNT DECREASED [None]
  - SLEEP DISORDER [None]
